FAERS Safety Report 20595819 (Version 2)
Quarter: 2022Q1

REPORT INFORMATION
  Report Type: Spontaneous
  Country: US (occurrence: US)
  Receive Date: 20220315
  Receipt Date: 20220317
  Transmission Date: 20220423
  Serious: No
  Sender: FDA-Public Use
  Company Number: US-ORGANON-O2203USA001231

PATIENT
  Sex: Female

DRUGS (2)
  1. NEXPLANON [Suspect]
     Active Substance: ETONOGESTREL
     Indication: Contraception
     Dosage: 1 IMPLANT OF 68 MG
     Route: 059
     Dates: end: 20220302
  2. NEXPLANON [Suspect]
     Active Substance: ETONOGESTREL
     Dosage: 1 IMPLANT OF 68 MG
     Route: 059
     Dates: start: 20220302

REACTIONS (9)
  - Encapsulation reaction [Recovering/Resolving]
  - Device issue [Recovered/Resolved]
  - Complication of device removal [Recovered/Resolved]
  - Implant site pain [Recovering/Resolving]
  - Implant site induration [Recovering/Resolving]
  - Device placement issue [Unknown]
  - Limb discomfort [Unknown]
  - Complication of device removal [Not Recovered/Not Resolved]
  - Movement disorder [Unknown]

NARRATIVE: CASE EVENT DATE: 20220301
